FAERS Safety Report 8312517-8 (Version None)
Quarter: 2012Q2

REPORT INFORMATION
  Report Type: 
  Country: None (occurrence: None)
  Receive Date: 20120425
  Receipt Date: 20120417
  Transmission Date: 20120825
  Serious: Yes (Hospitalization, Disabling)
  Sender: FDA-Public Use
  Company Number: US-MERCK-1201USA00874

PATIENT
  Age: 63 Year
  Sex: Female
  Weight: 72 kg

DRUGS (11)
  1. VIOXX [Concomitant]
     Indication: BACK PAIN
     Route: 048
  2. FOSAMAX [Suspect]
     Indication: OSTEOPOROSIS
     Route: 048
     Dates: start: 20010101, end: 20080101
  3. FOSAMAX [Suspect]
     Route: 048
     Dates: start: 20090801, end: 20100201
  4. CALCIUM (UNSPECIFIED) [Concomitant]
     Route: 065
     Dates: start: 19970101
  5. CALCIUM (UNSPECIFIED) AND VITAMIN D (UNSPECIFIED) [Concomitant]
     Route: 065
  6. FOSAMAX PLUS D [Suspect]
     Indication: OSTEOPOROSIS
     Route: 048
     Dates: start: 20070901, end: 20090701
  7. BEXTRA [Concomitant]
     Indication: BACK PAIN
     Route: 065
  8. PREMARIN [Concomitant]
     Route: 065
     Dates: start: 19850101, end: 20080101
  9. CORTICOSTEROIDS (UNSPECIFIED) [Concomitant]
     Indication: ASTHMA
     Route: 055
  10. MULTI-VITAMINS [Concomitant]
     Route: 065
     Dates: start: 19870101
  11. SYNTHROID [Concomitant]
     Indication: HYPOTHYROIDISM
     Route: 065

REACTIONS (29)
  - COUGH [None]
  - RAYNAUD'S PHENOMENON [None]
  - MUSCULOSKELETAL STIFFNESS [None]
  - ADENOIDAL DISORDER [None]
  - ATELECTASIS [None]
  - ARTHRITIS [None]
  - VITILIGO [None]
  - FOOT DEFORMITY [None]
  - BODY HEIGHT DECREASED [None]
  - MYALGIA [None]
  - TONSILLAR DISORDER [None]
  - SPINAL DISORDER [None]
  - SJOGREN'S SYNDROME [None]
  - NODAL OSTEOARTHRITIS [None]
  - MOUTH ULCERATION [None]
  - THYROID NEOPLASM [None]
  - FALL [None]
  - FATIGUE [None]
  - DRUG INEFFECTIVE [None]
  - OSTEOPENIA [None]
  - OSTEOARTHRITIS [None]
  - MIGRAINE [None]
  - FEMUR FRACTURE [None]
  - LOW TURNOVER OSTEOPATHY [None]
  - HYPERTENSION [None]
  - HYPERCHOLESTEROLAEMIA [None]
  - ARTHRALGIA [None]
  - BUNION [None]
  - SPINAL OSTEOARTHRITIS [None]
